FAERS Safety Report 8109958-0 (Version None)
Quarter: 2012Q1

REPORT INFORMATION
  Report Type: 
  Country: None (occurrence: None)
  Receive Date: 20120202
  Receipt Date: 20120123
  Transmission Date: 20120608
  Serious: No
  Sender: FDA-Public Use
  Company Number: US-AMGEN-USASP2012004706

PATIENT
  Age: 61 Year
  Sex: Female

DRUGS (1)
  1. ENBREL [Suspect]
     Indication: PSORIATIC ARTHROPATHY
     Dosage: 50 MG, QWK
     Dates: start: 20051205, end: 20120120

REACTIONS (6)
  - EAR INFECTION [None]
  - OROPHARYNGEAL PAIN [None]
  - SINUS CONGESTION [None]
  - FEELING ABNORMAL [None]
  - COUGH [None]
  - FATIGUE [None]
